FAERS Safety Report 6813598-0 (Version None)
Quarter: 2010Q3

REPORT INFORMATION
  Report Type: 
  Country: None (occurrence: None)
  Receive Date: 20100701
  Receipt Date: 20100623
  Transmission Date: 20110219
  Serious: Yes (Other)
  Sender: FDA-Public Use
  Company Number: US-PFIZER INC-2010026712

PATIENT
  Sex: Male
  Weight: 77.098 kg

DRUGS (4)
  1. CHANTIX [Suspect]
     Indication: SMOKING CESSATION THERAPY
     Dosage: 0.5 MG, 1X/DAY
     Route: 048
     Dates: start: 20100101, end: 20100101
  2. CHANTIX [Suspect]
     Dosage: UNK MG, UNK
     Route: 048
     Dates: start: 20100101
  3. PROZAC [Concomitant]
     Indication: DEPRESSION
     Dosage: UNK
  4. TESTOSTERONE [Concomitant]
     Dosage: UNK

REACTIONS (11)
  - AGITATION [None]
  - ANGER [None]
  - ANTISOCIAL BEHAVIOUR [None]
  - ASPARTATE AMINOTRANSFERASE INCREASED [None]
  - BLOOD CORTISOL INCREASED [None]
  - BLOOD LUTEINISING HORMONE DECREASED [None]
  - BLOOD LUTEINISING HORMONE INCREASED [None]
  - BLOOD UREA NITROGEN/CREATININE RATIO INCREASED [None]
  - DEPRESSION [None]
  - URINARY NITROGEN INCREASED [None]
  - VITAMIN D DECREASED [None]
